FAERS Safety Report 7292796-9 (Version None)
Quarter: 2011Q1

REPORT INFORMATION
  Report Type: 
  Country: None (occurrence: None)
  Receive Date: 20110215
  Receipt Date: 20110202
  Transmission Date: 20110831
  Serious: Yes (Hospitalization, Other)
  Sender: FDA-Public Use
  Company Number: US-ELI_LILLY_AND_COMPANY-US201102001262

PATIENT
  Sex: Female

DRUGS (4)
  1. DIOVAN [Concomitant]
     Dosage: 160 MG, DAILY (1/D)
  2. CALCIUM [Concomitant]
  3. FORTEO [Suspect]
     Indication: OSTEOPOROSIS
     Dosage: 20 UG, DAILY (1/D)
     Dates: start: 20101201
  4. VITAMIN D [Concomitant]

REACTIONS (4)
  - BONE FRAGMENTATION [None]
  - SPINAL DECOMPRESSION [None]
  - SPINAL COLUMN STENOSIS [None]
  - ASTHENIA [None]
